FAERS Safety Report 23548873 (Version 1)
Quarter: 2024Q1

REPORT INFORMATION
  Report Type: Spontaneous
  Country: US (occurrence: None)
  Receive Date: 20240220
  Receipt Date: 20240220
  Transmission Date: 20240410
  Serious: Yes (Life-Threatening, Hospitalization, Disabling)
  Sender: FDA-Public Use
  Company Number: None

PATIENT
  Age: 73 Year
  Sex: Female
  Weight: 81.65 kg

DRUGS (8)
  1. FENTANYL [Suspect]
     Active Substance: FENTANYL\FENTANYL CITRATE
  2. BUPIVACAINE [Suspect]
     Active Substance: BUPIVACAINE
  3. MORPHINE [Suspect]
     Active Substance: MORPHINE
  4. BUPRENORPHINE [Suspect]
     Active Substance: BUPRENORPHINE
  5. THYROXINE [Concomitant]
     Active Substance: LEVOTHYROXINE
  6. LASIK^s [Concomitant]
  7. Methadone Pregabalin [Concomitant]
  8. VITAMIN D3 [Concomitant]
     Active Substance: CHOLECALCIFEROL

REACTIONS (17)
  - Medical device pain [None]
  - Autonomic nervous system imbalance [None]
  - Drug withdrawal syndrome [None]
  - Skin burning sensation [None]
  - Asthenia [None]
  - Tremor [None]
  - Visual impairment [None]
  - Syncope [None]
  - Brain fog [None]
  - Kidney infection [None]
  - Fatigue [None]
  - Yawning [None]
  - Dyspnoea [None]
  - Heart rate abnormal [None]
  - Hypertension [None]
  - Loss of consciousness [None]
  - Suicidal ideation [None]

NARRATIVE: CASE EVENT DATE: 20200825
